FAERS Safety Report 17797247 (Version 1)
Quarter: 2020Q2

REPORT INFORMATION
  Report Type: Spontaneous
  Country: US (occurrence: US)
  Receive Date: 20200515
  Receipt Date: 20200515
  Transmission Date: 20200714
  Serious: No
  Sender: FDA-Public Use
  Company Number: None

PATIENT
  Age: 76 Year
  Sex: Female

DRUGS (1)
  1. LETAIRIS [Suspect]
     Active Substance: AMBRISENTAN
     Route: 048
     Dates: start: 201912

REACTIONS (4)
  - Nasal congestion [None]
  - Body temperature increased [None]
  - Abdominal distension [None]
  - Fluid retention [None]

NARRATIVE: CASE EVENT DATE: 20200511
